FAERS Safety Report 8290259-5 (Version None)
Quarter: 2012Q2

REPORT INFORMATION
  Report Type: 
  Country: None (occurrence: None)
  Receive Date: 20120417
  Receipt Date: 20120330
  Transmission Date: 20120825
  Serious: No
  Sender: FDA-Public Use
  Company Number: US-ROXANE LABORATORIES, INC.-2012-RO-00927RO

PATIENT
  Sex: Male

DRUGS (3)
  1. ABILIFY [Concomitant]
     Dosage: 15 MG
     Dates: start: 20110823
  2. LITHIUM CARBONATE [Suspect]
     Indication: BIPOLAR DISORDER
     Dosage: 600 MG
     Route: 048
     Dates: start: 20120101, end: 20120201
  3. PAXIL [Concomitant]

REACTIONS (2)
  - TREMOR [None]
  - BRUXISM [None]
